APPROVED DRUG PRODUCT: ACETAZOLAMIDE SODIUM
Active Ingredient: ACETAZOLAMIDE SODIUM
Strength: EQ 500MG BASE/VIAL
Dosage Form/Route: INJECTABLE;INJECTION
Application: A040108 | Product #001
Applicant: HOSPIRA INC
Approved: Oct 30, 1995 | RLD: No | RS: No | Type: DISCN